FAERS Safety Report 8915130 (Version 1)
Quarter: 2012Q4

REPORT INFORMATION
  Report Type: 
  Country: US (occurrence: US)
  Receive Date: 20121119
  Receipt Date: 20121119
  Transmission Date: 20130627
  Serious: No
  Sender: FDA-Public Use
  Company Number: US-009507513-1211USA007184

PATIENT
  Sex: Female

DRUGS (4)
  1. ASMANEX TWISTHALER [Suspect]
     Dosage: 220 mcg/ 2 puffs twice daily
     Route: 055
  2. BROVANA [Concomitant]
  3. PROVENTIL HFA [Concomitant]
  4. RESTORIL (TEMAZEPAM) [Concomitant]

REACTIONS (2)
  - Oral pain [Recovering/Resolving]
  - Swollen tongue [Recovering/Resolving]
